FAERS Safety Report 17069443 (Version 5)
Quarter: 2020Q4

REPORT INFORMATION
  Report Type: Report from Study
  Country: None (occurrence: US)
  Receive Date: 20191125
  Receipt Date: 20201108
  Transmission Date: 20210113
  Serious: Yes (Hospitalization)
  Sender: FDA-Public Use
  Company Number: US-ABBVIE-18K-163-2586267-00

PATIENT
  Age: 56 Year
  Sex: Male
  Weight: 99.88 kg

DRUGS (13)
  1. GABAPENTIN. [Concomitant]
     Active Substance: GABAPENTIN
     Indication: PRODUCT USED FOR UNKNOWN INDICATION
  2. PREDNISONE. [Concomitant]
     Active Substance: PREDNISONE
     Indication: PRODUCT USED FOR UNKNOWN INDICATION
     Dates: start: 20201026
  3. HUMIRA [Suspect]
     Active Substance: ADALIMUMAB
     Route: 058
     Dates: start: 20191027, end: 202003
  4. HUMIRA [Suspect]
     Active Substance: ADALIMUMAB
     Route: 058
     Dates: start: 202006, end: 20200928
  5. LISINOPRIL. [Concomitant]
     Active Substance: LISINOPRIL
     Indication: HYPERTENSION
  6. HCTZ [Concomitant]
     Active Substance: HYDROCHLOROTHIAZIDE
     Indication: HYPERTENSION
  7. HUMIRA [Suspect]
     Active Substance: ADALIMUMAB
     Indication: COLITIS ULCERATIVE
     Route: 058
     Dates: start: 20181105, end: 201901
  8. VENLAFAXINE [Concomitant]
     Active Substance: VENLAFAXINE HYDROCHLORIDE
     Indication: DEPRESSION
  9. DIVALPROEX SODIUM. [Concomitant]
     Active Substance: DIVALPROEX SODIUM
     Indication: ANXIETY
  10. HUMIRA [Suspect]
     Active Substance: ADALIMUMAB
     Indication: COLITIS ULCERATIVE
     Dosage: DAY 1
     Route: 058
     Dates: start: 20191012, end: 20191012
  11. MERCAPTOPURINE. [Concomitant]
     Active Substance: MERCAPTOPURINE
     Indication: COLITIS ULCERATIVE
  12. HUMIRA [Suspect]
     Active Substance: ADALIMUMAB
     Route: 058
     Dates: start: 20200414, end: 2020
  13. IRON [Concomitant]
     Active Substance: IRON
     Indication: PRODUCT USED FOR UNKNOWN INDICATION
     Route: 042
     Dates: start: 20191107

REACTIONS (22)
  - Swelling face [Unknown]
  - Pruritus [Unknown]
  - Rash [Not Recovered/Not Resolved]
  - Haemoglobin decreased [Recovered/Resolved]
  - Colitis ulcerative [Recovered/Resolved]
  - Sneezing [Unknown]
  - Abnormal faeces [Recovering/Resolving]
  - Hypoaesthesia [Unknown]
  - Herpes zoster [Unknown]
  - Paraesthesia [Unknown]
  - Colitis ulcerative [Recovering/Resolving]
  - Arthralgia [Unknown]
  - Dizziness [Recovered/Resolved]
  - Hypotension [Recovered/Resolved]
  - Loss of consciousness [Recovered/Resolved]
  - Muscle spasms [Unknown]
  - Blood iron decreased [Recovered/Resolved]
  - Muscle spasms [Recovered/Resolved]
  - Erythema [Unknown]
  - Incorrect route of product administration [Recovered/Resolved]
  - Fatigue [Not Recovered/Not Resolved]
  - Genital rash [Not Recovered/Not Resolved]

NARRATIVE: CASE EVENT DATE: 20181206
